FAERS Safety Report 15707423 (Version 1)
Quarter: 2018Q4

REPORT INFORMATION
  Report Type: Spontaneous
  Country: US (occurrence: US)
  Receive Date: 20181127
  Receipt Date: 20181127
  Transmission Date: 20190205
  Serious: No
  Sender: FDA-Public Use
  Company Number: None

PATIENT

DRUGS (1)
  1. CIPROFLOXACIN HCL 250MG [Suspect]
     Active Substance: CIPROFLOXACIN
     Dosage: ?          QUANTITY:AKINO OR;?
     Route: 048

REACTIONS (1)
  - Unevaluable event [None]
